FAERS Safety Report 4906341-3 (Version None)
Quarter: 2006Q1

REPORT INFORMATION
  Report Type: 
  Country: None (occurrence: None)
  Receive Date: 20060209
  Receipt Date: 20060126
  Transmission Date: 20060701
  Serious: Yes (Other)
  Sender: FDA-Public Use
  Company Number: ZA-JNJFOC-20060105590

PATIENT

DRUGS (2)
  1. TOPAMAX [Suspect]
     Route: 048
  2. TREPILINE [Concomitant]

REACTIONS (2)
  - CHOROIDAL EFFUSION [None]
  - MYOPIA [None]
